FAERS Safety Report 9988737 (Version 1)
Quarter: 2014Q1

REPORT INFORMATION
  Report Type: Not Available
  Country: US (occurrence: US)
  Receive Date: 20140310
  Receipt Date: 20140310
  Transmission Date: 20141002
  Serious: Yes (Other)
  Sender: FDA-Public Use
  Company Number: US-LUPIN PHARMACEUTICALS INC.-E2B_00001770

PATIENT
  Age: 43 Year
  Sex: Male
  Weight: 136.2 kg

DRUGS (3)
  1. MELOXICAM TABLETS USP 7.5 MG [Suspect]
     Indication: GASTROOESOPHAGEAL REFLUX DISEASE
  2. LISINOPRIL TABLETS USP 10 MG [Suspect]
     Indication: HYPERTENSION
  3. OMEPRAZOLE [Concomitant]
     Indication: GASTROOESOPHAGEAL REFLUX DISEASE
     Route: 065

REACTIONS (1)
  - Coeliac disease [Not Recovered/Not Resolved]
